FAERS Safety Report 6541539-2 (Version None)
Quarter: 2010Q1

REPORT INFORMATION
  Report Type: 
  Country: None (occurrence: None)
  Receive Date: 20100119
  Receipt Date: 20100112
  Transmission Date: 20100710
  Serious: Yes (Hospitalization, Other)
  Sender: FDA-Public Use
  Company Number: US-SANOFI-AVENTIS-2010SA002005

PATIENT
  Sex: Male

DRUGS (2)
  1. LANTUS [Suspect]
     Dosage: 30 UNITS IN THE AM AND 35 UNITS IN THE PM
     Route: 058
  2. HUMALOG [Concomitant]

REACTIONS (7)
  - BLOOD GLUCOSE INCREASED [None]
  - CONDITION AGGRAVATED [None]
  - MUSCULOSKELETAL PAIN [None]
  - PARALYSIS [None]
  - PERIARTHRITIS [None]
  - SENSATION OF HEAVINESS [None]
  - SPINAL CORD DISORDER [None]
